FAERS Safety Report 6444766-8 (Version None)
Quarter: 2009Q4

REPORT INFORMATION
  Report Type: 
  Country: None (occurrence: None)
  Receive Date: 20091118
  Receipt Date: 20091109
  Transmission Date: 20100525
  Serious: Yes (Hospitalization)
  Sender: FDA-Public Use
  Company Number: B0599658A

PATIENT
  Sex: Female

DRUGS (13)
  1. LAMICTAL [Suspect]
     Indication: EPILEPSY
     Dosage: 100MG TWICE PER DAY
     Route: 048
     Dates: start: 20090323, end: 20090707
  2. MOBIC [Suspect]
     Indication: HEADACHE
     Dosage: 10MG PER DAY
     Route: 048
     Dates: start: 20090529, end: 20090707
  3. DEPAKENE [Concomitant]
     Indication: EPILEPSY
     Dosage: 1000MG PER DAY
     Route: 048
  4. PREDONINE [Concomitant]
     Indication: SYSTEMIC LUPUS ERYTHEMATOSUS
     Dosage: 4MG TWICE PER DAY
     Route: 065
  5. TETRAMIDE [Concomitant]
     Indication: DEPRESSION
     Dosage: 5MG PER DAY
     Route: 048
  6. BENZALIN [Concomitant]
     Indication: INSOMNIA
     Route: 048
  7. GASCON [Concomitant]
     Indication: GASTRITIS
     Dosage: 40MG TWICE PER DAY
     Route: 048
  8. MEILAX [Concomitant]
     Indication: DEPRESSION
     Dosage: 1MG TWICE PER DAY
     Route: 048
  9. MAGMITT [Concomitant]
     Indication: CONSTIPATION
     Dosage: 330MG THREE TIMES PER DAY
     Route: 048
  10. ZANTAC [Concomitant]
     Indication: GASTRITIS
     Dosage: 150MG PER DAY
     Route: 065
  11. MYSLEE [Concomitant]
     Indication: INSOMNIA
     Dosage: 5MG PER DAY
     Route: 048
  12. OPALMON [Concomitant]
     Dosage: 5MG THREE TIMES PER DAY
     Route: 048
  13. MUCOSTA [Concomitant]
     Indication: GASTRITIS
     Dosage: 200MG PER DAY
     Route: 048

REACTIONS (15)
  - BLOOD CREATINE PHOSPHOKINASE DECREASED [None]
  - BLOOD IMMUNOGLOBULIN A DECREASED [None]
  - BLOOD IMMUNOGLOBULIN G DECREASED [None]
  - BLOOD IMMUNOGLOBULIN M DECREASED [None]
  - BLOOD LACTATE DEHYDROGENASE INCREASED [None]
  - C-REACTIVE PROTEIN INCREASED [None]
  - DRUG ERUPTION [None]
  - EOSINOPHIL COUNT INCREASED [None]
  - ERYTHEMA MULTIFORME [None]
  - HAEMOGLOBIN DECREASED [None]
  - LYMPHOCYTE COUNT DECREASED [None]
  - MEAN CELL HAEMOGLOBIN DECREASED [None]
  - MEAN CELL VOLUME DECREASED [None]
  - PROTEIN TOTAL DECREASED [None]
  - RED BLOOD CELL COUNT DECREASED [None]
